FAERS Safety Report 22659367 (Version 4)
Quarter: 2024Q1

REPORT INFORMATION
  Report Type: Report from Study
  Country: NL (occurrence: NL)
  Receive Date: 20230630
  Receipt Date: 20240330
  Transmission Date: 20240410
  Serious: Yes (Hospitalization, Other)
  Sender: FDA-Public Use
  Company Number: NL-ABBVIE-5310069

PATIENT
  Sex: Female

DRUGS (8)
  1. CARBIDOPA\LEVODOPA [Suspect]
     Active Substance: CARBIDOPA\LEVODOPA
     Indication: Parkinson^s disease
     Route: 050
     Dates: start: 20080408
  2. CARBIDOPA\LEVODOPA [Suspect]
     Active Substance: CARBIDOPA\LEVODOPA
     Dosage: MD 4.9 ML; CD 3.6 ML/H; ED 2.0 ML, CND: 2.5 ML/H, END: 2.0 ML, REMAINS AT 24 HOURS
     Route: 050
     Dates: start: 20240325
  3. CARBIDOPA\LEVODOPA [Suspect]
     Active Substance: CARBIDOPA\LEVODOPA
     Dosage: MD: 4.9 ML, CD: 3.6 ML/H, ED: 2.0 ML, CND: 4.2 ML/H, END: 2.0 ML REMAINS AT 24 HOURS
     Route: 050
     Dates: start: 20230628, end: 20230921
  4. CARBIDOPA\LEVODOPA [Suspect]
     Active Substance: CARBIDOPA\LEVODOPA
     Dosage: MD: 4.9 ML, CD: 3.6 ML/H, ED: 2.0 ML, CND: 4.2 ML/H, END: 2.0 ML
     Route: 050
  5. CARBIDOPA\LEVODOPA [Suspect]
     Active Substance: CARBIDOPA\LEVODOPA
     Dosage: MD 4.9 ML; CD 3.6 ML/H; ED 2.0 ML REMAINS AT 16 HOURS
     Route: 050
     Dates: start: 20231011, end: 20240325
  6. CARBIDOPA\LEVODOPA [Suspect]
     Active Substance: CARBIDOPA\LEVODOPA
     Dosage: MD: 4.9 ML, CD: 3.5 ML/H, ED: 2.0 ML, CND: 2.4 ML/H?REMAINS AT 24 HOURS
     Route: 050
  7. CARBIDOPA\LEVODOPA [Suspect]
     Active Substance: CARBIDOPA\LEVODOPA
     Dosage: MD: 4.9 ML, CD: 3.6 ML/H, ED: 2.0 ML, CND: 4.2 ML/H, END: 2.0 ML?REMAINS AT 24 HOURS
     Route: 050
  8. CARBIDOPA\LEVODOPA [Suspect]
     Active Substance: CARBIDOPA\LEVODOPA
     Dosage: MD 4.9 ML; CD 3.7 ML/H; ED 2.0 ML; CND 2.5 ML/H; END 2.0 ML REMAINS AT 24 HOURS
     Route: 050
     Dates: start: 20230921, end: 20231011

REACTIONS (24)
  - Cataract [Recovered/Resolved]
  - Malaise [Not Recovered/Not Resolved]
  - Dyskinesia [Not Recovered/Not Resolved]
  - On and off phenomenon [Not Recovered/Not Resolved]
  - Restlessness [Not Recovered/Not Resolved]
  - Hallucination [Not Recovered/Not Resolved]
  - Muscle rigidity [Not Recovered/Not Resolved]
  - Unevaluable event [Not Recovered/Not Resolved]
  - Loss of personal independence in daily activities [Recovered/Resolved]
  - Tremor [Not Recovered/Not Resolved]
  - Gait disturbance [Not Recovered/Not Resolved]
  - Bowel movement irregularity [Not Recovered/Not Resolved]
  - Abnormal dreams [Not Recovered/Not Resolved]
  - Freezing phenomenon [Not Recovered/Not Resolved]
  - Tension [Not Recovered/Not Resolved]
  - Cognitive disorder [Recovering/Resolving]
  - Unevaluable event [Recovered/Resolved]
  - Weight increased [Not Recovered/Not Resolved]
  - Stress [Not Recovered/Not Resolved]
  - Nocturia [Not Recovered/Not Resolved]
  - Decreased appetite [Not Recovered/Not Resolved]
  - Loss of personal independence in daily activities [Not Recovered/Not Resolved]
  - Fatigue [Not Recovered/Not Resolved]
  - Terminal insomnia [Unknown]

NARRATIVE: CASE EVENT DATE: 20230101
